FAERS Safety Report 10722978 (Version 3)
Quarter: 2015Q2

REPORT INFORMATION
  Report Type: Report from Study
  Country: BG (occurrence: BG)
  Receive Date: 20150120
  Receipt Date: 20150619
  Transmission Date: 20150821
  Serious: Yes (Other)
  Sender: FDA-Public Use
  Company Number: PHHY2015BG003630

PATIENT
  Age: 41 Year
  Sex: Male

DRUGS (2)
  1. GILENYA [Suspect]
     Active Substance: FINGOLIMOD HYDROCHLORIDE
     Indication: MULTIPLE SCLEROSIS
     Dosage: 1 MG, QD
     Route: 048
     Dates: start: 20140103
  2. LEGALON [Concomitant]
     Active Substance: MILK THISTLE
     Indication: HEPATIC ENZYME INCREASED
     Route: 065
     Dates: start: 20140104, end: 20140925

REACTIONS (3)
  - Prescribed overdose [Unknown]
  - Hypertensive crisis [Recovered/Resolved]
  - Off label use [Unknown]

NARRATIVE: CASE EVENT DATE: 20140103
